FAERS Safety Report 12010242 (Version 14)
Quarter: 2020Q2

REPORT INFORMATION
  Report Type: Report from Study
  Country: JP (occurrence: JP)
  Receive Date: 20160205
  Receipt Date: 20200625
  Transmission Date: 20200713
  Serious: Yes (Hospitalization, Disabling, Other)
  Sender: FDA-Public Use
  Company Number: JP-GLAXOSMITHKLINE-JP2016JPN012091

PATIENT
  Sex: Male

DRUGS (51)
  1. ABACAVIRSULPHATE+DOLUTEGRAVIR+LAMIVUDINE [Suspect]
     Active Substance: ABACAVIR SULFATE\DOLUTEGRAVIR SODIUM\LAMIVUDINE
     Dosage: 1 DF, 1D
     Route: 048
     Dates: start: 20190109, end: 20190212
  2. CELSENTRI [Suspect]
     Active Substance: MARAVIROC
     Dosage: 600 MG, 1D
     Route: 048
     Dates: start: 20150102, end: 20150121
  3. VALACICLOVIR [Suspect]
     Active Substance: VALACYCLOVIR HYDROCHLORIDE
     Indication: RETINAL DISORDER
     Dosage: 1000 MG, QD
     Route: 048
     Dates: start: 20150219, end: 20161013
  4. MYCOBUTIN [Suspect]
     Active Substance: RIFABUTIN
     Dosage: 300 MG, QD
     Route: 048
     Dates: start: 20140625, end: 20190320
  5. SAMTIREL [Concomitant]
     Active Substance: ATOVAQUONE
     Indication: CEREBRAL TOXOPLASMOSIS
     Dosage: 750 MG, BID
     Dates: start: 20140324, end: 20140723
  6. STREPTOMYCIN SULFATE. [Concomitant]
     Active Substance: STREPTOMYCIN SULFATE
     Indication: MYCOBACTERIUM AVIUM COMPLEX INFECTION
     Dosage: 1 G, THREE TIMES A WEEK
     Dates: start: 20141007, end: 20150911
  7. STREPTOMYCIN SULFATE. [Concomitant]
     Active Substance: STREPTOMYCIN SULFATE
     Dosage: 1 G, TWICE A WEEK
     Dates: start: 20150916, end: 20160728
  8. AVELOX [Concomitant]
     Active Substance: MOXIFLOXACIN HYDROCHLORIDE
     Indication: MYCOBACTERIUM AVIUM COMPLEX INFECTION
     Dosage: 400 MG, QD
     Dates: start: 20150401, end: 20190320
  9. LEXIVA [Suspect]
     Active Substance: FOSAMPRENAVIR CALCIUM
     Indication: HIV INFECTION
     Dosage: 1400 MG, BID
     Route: 048
     Dates: start: 20140317, end: 20140624
  10. PREDONINE [Suspect]
     Active Substance: PREDNISOLONE
     Dosage: UNK
     Route: 048
  11. ISENTRESS [Suspect]
     Active Substance: RALTEGRAVIR POTASSIUM
     Indication: HIV INFECTION
     Dosage: 2 DF, 1D
     Route: 048
     Dates: start: 20181114, end: 20190108
  12. MYCOBUTIN [Suspect]
     Active Substance: RIFABUTIN
     Indication: MYCOBACTERIUM AVIUM COMPLEX INFECTION
     Dosage: 300 MG, QD
     Route: 048
     Dates: start: 20130521, end: 20140312
  13. ISCOTIN (JAPAN) [Concomitant]
     Indication: MYCOBACTERIUM AVIUM COMPLEX INFECTION
     Dosage: 300 MG, QD
     Dates: start: 20140903, end: 20141109
  14. LUCONAC [Concomitant]
     Dosage: UNK
     Dates: start: 20171108
  15. DOLUTEGRAVIR [Suspect]
     Active Substance: DOLUTEGRAVIR
     Dosage: 50 MG, 1D
     Route: 048
     Dates: start: 20150112, end: 20170314
  16. EPIVIR [Suspect]
     Active Substance: LAMIVUDINE
     Indication: HIV INFECTION
     Dosage: 150 MG, BID
     Route: 048
     Dates: start: 20150123, end: 20170314
  17. CLARITHROMYCIN. [Concomitant]
     Active Substance: CLARITHROMYCIN
     Indication: MYCOBACTERIUM AVIUM COMPLEX INFECTION
     Dosage: 400 MG, BID
     Dates: start: 20130515, end: 20140312
  18. TRAMCET [Concomitant]
     Active Substance: ACETAMINOPHEN\TRAMADOL
     Dosage: 1-2 DF, 2-4 TIMES A DAY
     Dates: start: 20150102, end: 20150124
  19. DESCOVY [Concomitant]
     Active Substance: EMTRICITABINE\TENOFOVIR ALAFENAMIDE FUMARATE
     Indication: HIV INFECTION
     Dosage: 1 DF, 1D
     Dates: start: 20190213
  20. ZIAGEN [Suspect]
     Active Substance: ABACAVIR SULFATE
     Indication: HIV INFECTION
     Dosage: 300 MG, BID
     Route: 048
     Dates: start: 20150123, end: 20170314
  21. CRAVIT [Suspect]
     Active Substance: LEVOFLOXACIN
     Indication: MYCOBACTERIUM AVIUM COMPLEX INFECTION
     Dosage: 500 MG, QD
     Route: 042
     Dates: start: 20140624, end: 20140908
  22. CRAVIT [Suspect]
     Active Substance: LEVOFLOXACIN
     Dosage: 500 MG, QD
     Route: 042
     Dates: start: 20140909, end: 20140930
  23. CRAVIT [Suspect]
     Active Substance: LEVOFLOXACIN
     Dosage: 500 MG, QD
     Route: 042
     Dates: start: 20141109, end: 20141221
  24. PREDONINE [Suspect]
     Active Substance: PREDNISOLONE
     Indication: MYCOBACTERIUM AVIUM COMPLEX INFECTION
     Dosage: 30-60 MG, QD
     Route: 042
     Dates: start: 20140829, end: 20140919
  25. PREDONINE [Suspect]
     Active Substance: PREDNISOLONE
     Dosage: 50-60 MG, QD
     Route: 042
     Dates: start: 20150114, end: 20150120
  26. TRUVADA [Suspect]
     Active Substance: EMTRICITABINE\TENOFOVIR DISOPROXIL FUMARATE
     Indication: HIV INFECTION
     Dosage: 1 DF, 1D
     Route: 048
     Dates: start: 20130711, end: 20130929
  27. EBUTOL [Suspect]
     Active Substance: ETHAMBUTOL HYDROCHLORIDE
     Indication: MYCOBACTERIUM AVIUM COMPLEX INFECTION
     Dosage: 750 MG, QD
     Route: 048
     Dates: start: 20140723, end: 20190320
  28. LULICON CREAM [Concomitant]
     Dosage: UNK
     Dates: start: 20171108
  29. DOLUTEGRAVIR [Suspect]
     Active Substance: DOLUTEGRAVIR
     Indication: HIV INFECTION
     Dosage: 50 MG, 1D
     Route: 048
     Dates: start: 20140625, end: 20141225
  30. CRAVIT [Suspect]
     Active Substance: LEVOFLOXACIN
     Dosage: 500 MG, QD
     Route: 042
     Dates: start: 20141222, end: 20150303
  31. PREDONINE [Suspect]
     Active Substance: PREDNISOLONE
     Dosage: 25-26 MG, QD
     Route: 048
     Dates: start: 20150408, end: 20161102
  32. PREDONINE [Suspect]
     Active Substance: PREDNISOLONE
     Dosage: 7.5-30MG, QD
     Route: 048
     Dates: start: 20150102, end: 20150113
  33. MYCOBUTIN [Suspect]
     Active Substance: RIFABUTIN
     Dosage: 150 MG, QD
     Route: 048
     Dates: start: 20140407, end: 20140624
  34. TRUVADA [Suspect]
     Active Substance: EMTRICITABINE\TENOFOVIR DISOPROXIL FUMARATE
     Dosage: 1 DF, 1D
     Route: 048
     Dates: start: 20140317, end: 20141021
  35. TRUVADA [Suspect]
     Active Substance: EMTRICITABINE\TENOFOVIR DISOPROXIL FUMARATE
     Dosage: 1 DF, 1D
     Route: 048
     Dates: start: 20141211, end: 20141225
  36. TRAMCET [Concomitant]
     Active Substance: ACETAMINOPHEN\TRAMADOL
     Indication: MYCOBACTERIUM AVIUM COMPLEX INFECTION
     Dosage: 1-2 DF, 2-4 TIMES A DAY
     Dates: start: 20140715, end: 20151225
  37. ABACAVIRSULPHATE+DOLUTEGRAVIR+LAMIVUDINE [Suspect]
     Active Substance: ABACAVIR SULFATE\DOLUTEGRAVIR SODIUM\LAMIVUDINE
     Indication: HIV INFECTION
     Dosage: 1 DF, 1D
     Route: 048
     Dates: start: 20170315, end: 20181113
  38. PREDONINE [Suspect]
     Active Substance: PREDNISOLONE
     Indication: MYCOBACTERIUM AVIUM COMPLEX INFECTION
     Dosage: 7.5-30 MG, QD
     Route: 048
     Dates: start: 20140920, end: 20141225
  39. TRUVADA [Suspect]
     Active Substance: EMTRICITABINE\TENOFOVIR DISOPROXIL FUMARATE
     Dosage: 1 DF, 1D
     Route: 048
     Dates: start: 20150102, end: 20150122
  40. BAKTAR [Suspect]
     Active Substance: SULFAMETHOXAZOLE\TRIMETHOPRIM
     Indication: CEREBRAL TOXOPLASMOSIS
     Dosage: 2 DF, BID
     Route: 048
     Dates: start: 20140917, end: 20141221
  41. BACTRAMIN [Concomitant]
     Active Substance: SULFAMETHOXAZOLE\TRIMETHOPRIM
     Indication: CEREBRAL TOXOPLASMOSIS
     Dosage: 15 ML, BID
     Dates: start: 20140724, end: 20140916
  42. CLARITHROMYCIN. [Concomitant]
     Active Substance: CLARITHROMYCIN
     Dosage: 400 MG, BID
     Dates: start: 20140401, end: 20140722
  43. KANAMYCIN [Concomitant]
     Active Substance: KANAMYCIN A SULFATE
     Indication: MYCOBACTERIUM AVIUM COMPLEX INFECTION
     Dosage: 20 ML, QID
     Dates: start: 20140904, end: 20160901
  44. DOLUTEGRAVIR [Suspect]
     Active Substance: DOLUTEGRAVIR
     Dosage: 50 MG, 1D
     Route: 048
     Dates: start: 20190213
  45. EPZICOM [Suspect]
     Active Substance: ABACAVIR SULFATE\LAMIVUDINE
     Dosage: 1 DF, 1D
     Route: 048
     Dates: start: 20181114, end: 20190108
  46. BACTRAMIN [Concomitant]
     Active Substance: SULFAMETHOXAZOLE\TRIMETHOPRIM
     Dosage: 10 ML, BID
     Dates: start: 20141222, end: 20150312
  47. CELSENTRI [Suspect]
     Active Substance: MARAVIROC
     Indication: HIV INFECTION
     Dosage: 600 MG, 1D
     Route: 048
     Dates: start: 20140816, end: 20141225
  48. EPZICOM [Suspect]
     Active Substance: ABACAVIR SULFATE\LAMIVUDINE
     Indication: HIV INFECTION
     Dosage: 1 DF, 1D
     Route: 048
     Dates: start: 20141022, end: 20141210
  49. PREDONINE [Suspect]
     Active Substance: PREDNISOLONE
     Dosage: 27-40 MG, QD
     Route: 048
     Dates: start: 20150121, end: 20150407
  50. TRUVADA [Suspect]
     Active Substance: EMTRICITABINE\TENOFOVIR DISOPROXIL FUMARATE
     Dosage: 1 DF, 1D
     Route: 048
     Dates: start: 20131010, end: 20140312
  51. BAKTAR [Suspect]
     Active Substance: SULFAMETHOXAZOLE\TRIMETHOPRIM
     Dosage: 2 DF, BID
     Route: 048
     Dates: start: 20150313, end: 20161108

REACTIONS (12)
  - Vomiting [Recovering/Resolving]
  - Mycobacterium avium complex immune restoration disease [Recovered/Resolved]
  - Nausea [Recovering/Resolving]
  - Spinal compression fracture [Recovering/Resolving]
  - Necrotising retinitis [Recovered/Resolved with Sequelae]
  - Plantar fasciitis [Recovering/Resolving]
  - Depressive symptom [Recovering/Resolving]
  - Hepatic function abnormal [Recovered/Resolved]
  - Osteoporosis [Recovering/Resolving]
  - Leukopenia [Recovering/Resolving]
  - Abdominal discomfort [Recovered/Resolved]
  - Insomnia [Recovered/Resolved]

NARRATIVE: CASE EVENT DATE: 201404
